FAERS Safety Report 7375348-1 (Version None)
Quarter: 2011Q1

REPORT INFORMATION
  Report Type: 
  Country: None (occurrence: None)
  Receive Date: 20110301
  Receipt Date: 20101207
  Transmission Date: 20110831
  Serious: Yes (Disabling, Other)
  Sender: FDA-Public Use
  Company Number: ALA_01402_2010

PATIENT
  Sex: Male

DRUGS (3)
  1. REGLAN [Suspect]
     Indication: DYSKINESIA
     Dosage: 10 MG ORAL
     Route: 048
     Dates: start: 20030401, end: 20081101
  2. REGLAN [Suspect]
     Indication: ABDOMINAL PAIN
     Dosage: 10 MG ORAL
     Route: 048
     Dates: start: 20030401, end: 20081101
  3. REGLAN [Suspect]
     Indication: INCORRECT DRUG ADMINISTRATION DURATION
     Dosage: 10 MG ORAL
     Route: 048
     Dates: start: 20030401, end: 20081101

REACTIONS (1)
  - TARDIVE DYSKINESIA [None]
